FAERS Safety Report 26127000 (Version 1)
Quarter: 2025Q4

REPORT INFORMATION
  Report Type: Spontaneous
  Country: US (occurrence: US)
  Receive Date: 20251205
  Receipt Date: 20251205
  Transmission Date: 20260117
  Serious: No
  Sender: PRIMUS PHARMACEUTICALS
  Company Number: US-PRIMUS-2025-US-022675

PATIENT
  Age: 65 Year
  Sex: Male

DRUGS (2)
  1. DEVICE [Suspect]
     Active Substance: DEVICE
  2. IMPOYZ [Suspect]
     Active Substance: CLOBETASOL PROPIONATE
     Indication: Product used for unknown indication
     Dosage: APPLY TOPICALLY TO AFFECTED AREA TWICE A DAY FOR 4 WEEKS

REACTIONS (2)
  - Device ineffective [Unknown]
  - Drug ineffective [Unknown]
